FAERS Safety Report 6437272-8 (Version None)
Quarter: 2009Q4

REPORT INFORMATION
  Report Type: 
  Country: None (occurrence: None)
  Receive Date: 20091112
  Receipt Date: 20091105
  Transmission Date: 20100525
  Serious: Yes (Other)
  Sender: FDA-Public Use
  Company Number: FR-BRISTOL-MYERS SQUIBB COMPANY-14848006

PATIENT
  Age: 36 Year
  Sex: Female

DRUGS (3)
  1. REYATAZ [Suspect]
     Indication: HIV INFECTION
     Dates: start: 20091009, end: 20091016
  2. NORVIR [Suspect]
     Indication: HIV INFECTION
     Dosage: 1 DF= 100 UNITS NOS 1 IN EVENING
     Dates: start: 20091009
  3. TRUVADA [Suspect]
     Indication: HIV INFECTION
     Dosage: ONE IN THE EVENING
     Dates: start: 20091009

REACTIONS (4)
  - BLOOD BILIRUBIN UNCONJUGATED INCREASED [None]
  - DRUG LEVEL INCREASED [None]
  - JAUNDICE [None]
  - OCULAR ICTERUS [None]
